FAERS Safety Report 7454139-7 (Version None)
Quarter: 2011Q2

REPORT INFORMATION
  Report Type: 
  Country: None (occurrence: None)
  Receive Date: 20110503
  Receipt Date: 20110425
  Transmission Date: 20111010
  Serious: No
  Sender: FDA-Public Use
  Company Number: US-BIOGENIDEC-2011BI010188

PATIENT
  Age: 57 Year
  Sex: Male

DRUGS (2)
  1. TYSABRI [Suspect]
     Route: 042
     Dates: start: 20080926, end: 20090623
  2. TYSABRI [Suspect]
     Indication: MULTIPLE SCLEROSIS
     Route: 042
     Dates: start: 20090828, end: 20101208

REACTIONS (5)
  - GAIT DISTURBANCE [None]
  - PAIN [None]
  - FATIGUE [None]
  - BRADYPHRENIA [None]
  - MOBILITY DECREASED [None]
